FAERS Safety Report 20883428 (Version 1)
Quarter: 2022Q2

REPORT INFORMATION
  Report Type: Spontaneous
  Country: AU (occurrence: AU)
  Receive Date: 20220527
  Receipt Date: 20220527
  Transmission Date: 20220721
  Serious: Yes (Death, Hospitalization)
  Sender: FDA-Public Use
  Company Number: AU-MYLANLABS-2022M1038972

PATIENT
  Age: 6 Decade

DRUGS (3)
  1. LAMOTRIGINE [Suspect]
     Active Substance: LAMOTRIGINE
     Indication: Antidepressant therapy
     Dosage: 5000 MILLIGRAM
     Route: 048
  2. ZOPICLONE [Suspect]
     Active Substance: ZOPICLONE
     Indication: Product used for unknown indication
     Dosage: UNK
     Route: 048
  3. QUETIAPINE [Suspect]
     Active Substance: QUETIAPINE
     Indication: Antidepressant therapy
     Dosage: 3000 MILLIGRAM, EXTENDED RELEASE
     Route: 048

REACTIONS (6)
  - Vasoplegia syndrome [Fatal]
  - Overdose [Fatal]
  - Toxicity to various agents [Fatal]
  - Somnolence [Unknown]
  - Electrocardiogram QRS complex shortened [Unknown]
  - Hypotension [Unknown]
